FAERS Safety Report 5966369-1 (Version None)
Quarter: 2008Q4

REPORT INFORMATION
  Report Type: 
  Country: None (occurrence: None)
  Receive Date: 20081125
  Receipt Date: 20081117
  Transmission Date: 20090506
  Serious: Yes (Hospitalization, Other)
  Sender: FDA-Public Use
  Company Number: SY-ABBOTT-08P-152-0488223-00

PATIENT
  Age: 3 Year
  Sex: Male

DRUGS (7)
  1. CYCLOSPORINE [Suspect]
     Indication: FOCAL SEGMENTAL GLOMERULOSCLEROSIS
     Dosage: NOT REPORTED
  2. PREDNISOLONE SODIUM PHOSPHATE [Concomitant]
     Indication: FOCAL SEGMENTAL GLOMERULOSCLEROSIS
     Dosage: NOT REPORTED
  3. ALBUMIN (HUMAN) [Concomitant]
     Indication: FOCAL SEGMENTAL GLOMERULOSCLEROSIS
     Dosage: INFUSION
  4. ALBUMIN (HUMAN) [Concomitant]
     Dosage: INTERMITTENT INFUSIONS
  5. FUROSEMIDE [Concomitant]
     Indication: FOCAL SEGMENTAL GLOMERULOSCLEROSIS
     Dosage: NOT REPORTED
     Route: 042
  6. METHYLPREDNISOLONE 16MG TAB [Concomitant]
     Indication: FOCAL SEGMENTAL GLOMERULOSCLEROSIS
     Dosage: BOLUS DOSES
  7. LOOP DIURETIC [Concomitant]
     Indication: FOCAL SEGMENTAL GLOMERULOSCLEROSIS
     Dosage: NOT REPORTED

REACTIONS (1)
  - TOXIC ENCEPHALOPATHY [None]
